FAERS Safety Report 14698259 (Version 4)
Quarter: 2019Q2

REPORT INFORMATION
  Report Type: Spontaneous
  Country: US (occurrence: US)
  Receive Date: 20180330
  Receipt Date: 20190625
  Transmission Date: 20190711
  Serious: Yes (Other)
  Sender: FDA-Public Use
  Company Number: US-ASTRAZENECA-2018SE38032

PATIENT
  Age: 23221 Day
  Sex: Female
  Weight: 166 kg

DRUGS (16)
  1. ASPIRIN. [Concomitant]
     Active Substance: ASPIRIN
  2. GABAPENTIN. [Concomitant]
     Active Substance: GABAPENTIN
  3. ATORVASTATIN [Concomitant]
     Active Substance: ATORVASTATIN
  4. CARVEDILOL. [Concomitant]
     Active Substance: CARVEDILOL
  5. NYSTATIN. [Concomitant]
     Active Substance: NYSTATIN
  6. RENVELA [Concomitant]
     Active Substance: SEVELAMER CARBONATE
  7. VITAMIN D3 [Concomitant]
     Active Substance: CHOLECALCIFEROL
  8. FUROSEMIDE. [Concomitant]
     Active Substance: FUROSEMIDE
  9. MECLIZINE [Concomitant]
     Active Substance: MECLIZINE HYDROCHLORIDE
  10. VENTOLIN [Concomitant]
     Active Substance: ALBUTEROL SULFATE
  11. PRILOSEC [Suspect]
     Active Substance: OMEPRAZOLE MAGNESIUM
     Route: 048
     Dates: start: 200801, end: 201708
  12. DULOXETINE. [Concomitant]
     Active Substance: DULOXETINE
  13. PROTONIX [Suspect]
     Active Substance: PANTOPRAZOLE SODIUM
     Route: 065
     Dates: start: 200801, end: 201708
  14. HUMALOG [Concomitant]
     Active Substance: INSULIN LISPRO
  15. RANITIDINE. [Concomitant]
     Active Substance: RANITIDINE
  16. LANTUS [Concomitant]
     Active Substance: INSULIN GLARGINE

REACTIONS (10)
  - Nephrogenic anaemia [Unknown]
  - Renal injury [Unknown]
  - End stage renal disease [Unknown]
  - Dyspepsia [Unknown]
  - Chronic kidney disease [Unknown]
  - Acute kidney injury [Unknown]
  - Renal failure [Unknown]
  - Tubulointerstitial nephritis [Unknown]
  - Gout [Unknown]
  - Hyperparathyroidism secondary [Unknown]

NARRATIVE: CASE EVENT DATE: 20141228
